FAERS Safety Report 19372231 (Version 1)
Quarter: 2021Q2

REPORT INFORMATION
  Report Type: Spontaneous
  Country: US (occurrence: US)
  Receive Date: 20210604
  Receipt Date: 20210604
  Transmission Date: 20210717
  Serious: Yes (Other)
  Sender: FDA-Public Use
  Company Number: US-CIPLA LTD.-2021US03884

PATIENT

DRUGS (19)
  1. SIMETHICONE (DIMETHICONE) [Suspect]
     Active Substance: DIMETHICONE
     Indication: PRODUCT USED FOR UNKNOWN INDICATION
     Dosage: 80 MILLIGRAM, TID, (AT 09:00 AM, 06:00 PM, 09:00 PM)
     Route: 048
     Dates: end: 2020
  2. MELATONIN [Suspect]
     Active Substance: MELATONIN
     Dosage: 10 MILLIGRAM, QD (AT BEDTIME 09:00 PM) CAPSULE
     Route: 065
     Dates: start: 20200420
  3. ELIQUIS [Suspect]
     Active Substance: APIXABAN
     Dosage: 2.5 MILLIGRAM, BID (09:00 AM AND 09:00 PM)
     Route: 065
     Dates: start: 20200608
  4. TRUBIOTICS ONE A DAY [Concomitant]
     Active Substance: PROBIOTICS NOS
     Indication: PROPHYLAXIS
  5. METOPROLOL. [Interacting]
     Active Substance: METOPROLOL
     Dosage: UNK, DOSE DECREASED
     Route: 065
     Dates: start: 20200601, end: 20200608
  6. TRAZODONE [Suspect]
     Active Substance: TRAZODONE HYDROCHLORIDE
     Indication: PRODUCT USED FOR UNKNOWN INDICATION
     Dosage: 100 MILLIGRAM, QD (AT 06:00 PM)
     Route: 065
  7. CEPHALEXIN [CEFALEXIN] [Concomitant]
     Active Substance: CEPHALEXIN
     Indication: URINARY TRACT INFECTION
     Dosage: 250 MILLIGRAM, TID
     Route: 048
     Dates: start: 20200421
  8. METOPROLOL. [Interacting]
     Active Substance: METOPROLOL
     Indication: PRODUCT USED FOR UNKNOWN INDICATION
     Dosage: 50 MILLIGRAM, QD (AT 09:00 AM)
     Route: 065
     Dates: end: 20200522
  9. LISINOPRIL. [Suspect]
     Active Substance: LISINOPRIL
     Dosage: UNK, DOSE DECREASED
     Route: 065
     Dates: start: 20200601, end: 20200608
  10. DIPHENHYDRAMINE. [Interacting]
     Active Substance: DIPHENHYDRAMINE
     Indication: SLEEP DISORDER
     Dosage: 50 MILLIGRAM, QD, NIGHTLY
     Route: 048
     Dates: start: 202005, end: 202005
  11. TRUBIOTICS ONE A DAY [Concomitant]
     Active Substance: PROBIOTICS NOS
     Indication: CLOSTRIDIUM DIFFICILE INFECTION
     Dosage: UNK, QD
     Route: 065
     Dates: start: 20200421
  12. SULFAMETHOXAZOLE AND TRIMETHOPRIM [Concomitant]
     Active Substance: SULFAMETHOXAZOLE\TRIMETHOPRIM
     Indication: URINARY TRACT INFECTION
     Dosage: 400/80 MG, BID (TWO TIMES DAILY)
     Route: 048
     Dates: start: 20200514
  13. ELIQUIS [Suspect]
     Active Substance: APIXABAN
     Indication: PRODUCT USED FOR UNKNOWN INDICATION
     Dosage: 2.5 MILLIGRAM, BID (AT 09:00 AM AND 06:00 PM)
     Route: 065
     Dates: end: 20200608
  14. PRESERVISION [Suspect]
     Active Substance: MINERALS\VITAMINS
     Indication: PRODUCT USED FOR UNKNOWN INDICATION
     Dosage: UNK, QD (2 AT 06:00 PM)
     Route: 065
  15. DONEPEZIL. [Suspect]
     Active Substance: DONEPEZIL
     Indication: PRODUCT USED FOR UNKNOWN INDICATION
     Dosage: 5 MILLIGRAM, QD (AT 09:00 AM)
     Route: 065
     Dates: end: 20200422
  16. LISINOPRIL. [Suspect]
     Active Substance: LISINOPRIL
     Indication: PRODUCT USED FOR UNKNOWN INDICATION
     Dosage: 5 MILLIGRAM, QD (AT 09:00 AM)
     Route: 065
     Dates: end: 20200522
  17. LORATADINE. [Interacting]
     Active Substance: LORATADINE
     Indication: PRODUCT USED FOR UNKNOWN INDICATION
     Dosage: 10 MILLIGRAM, QD (06:00 PM)
     Route: 065
  18. MELATONIN [Suspect]
     Active Substance: MELATONIN
     Indication: PRODUCT USED FOR UNKNOWN INDICATION
     Dosage: 10 MILLIGRAM, QD (AT BEDTIME 09:00 PM) TAB
     Route: 065
     Dates: end: 20200420
  19. DIPHENHYDRAMINE. [Interacting]
     Active Substance: DIPHENHYDRAMINE
     Dosage: 25 MILLIGRAM, QD, NIGHTLY
     Route: 048
     Dates: start: 202005, end: 20200522

REACTIONS (5)
  - Decreased appetite [Unknown]
  - Limb injury [Unknown]
  - Cognitive disorder [Unknown]
  - Fall [Unknown]
  - Drug interaction [Unknown]

NARRATIVE: CASE EVENT DATE: 202004
